FAERS Safety Report 6344474-8 (Version None)
Quarter: 2009Q3

REPORT INFORMATION
  Report Type: 
  Country: None (occurrence: None)
  Receive Date: 20090908
  Receipt Date: 20090827
  Transmission Date: 20100115
  Serious: Yes (Hospitalization, Disabling)
  Sender: FDA-Public Use
  Company Number: US-GENENTECH-289672

PATIENT
  Sex: Female

DRUGS (2)
  1. ACTIVASE [Suspect]
     Indication: THROMBOCYTOPENIC PURPURA
     Dosage: 0.1 MG/K/H, CONTINUOUS
  2. HEPARIN [Suspect]
     Indication: THROMBOCYTOPENIC PURPURA
     Dosage: 15 U/KG/H, CONTINUOUS

REACTIONS (6)
  - BLINDNESS [None]
  - DEVELOPMENTAL DELAY [None]
  - HAEMORRHAGE INTRACRANIAL [None]
  - INTRAVENTRICULAR HAEMORRHAGE [None]
  - RETINAL DETACHMENT [None]
  - VITREOUS HAEMORRHAGE [None]
